FAERS Safety Report 11923567 (Version 1)
Quarter: 2016Q1

REPORT INFORMATION
  Report Type: Report from Study
  Country: US (occurrence: US)
  Receive Date: 20160118
  Receipt Date: 20160118
  Transmission Date: 20160526
  Serious: Yes (Other)
  Sender: FDA-Public Use
  Company Number: US-AMGEN-USASL2015139688

PATIENT
  Age: 58 Year
  Sex: Female

DRUGS (2)
  1. PROLIA [Suspect]
     Active Substance: DENOSUMAB
     Indication: OSTEOPOROSIS
     Dosage: 60 MG, Q6MO
     Route: 058
     Dates: start: 20140912
  2. CALCIUM VITAMIN D [Concomitant]
     Active Substance: CALCIUM\VITAMIN D

REACTIONS (9)
  - Oral herpes [Recovered/Resolved]
  - Drug dose omission [Unknown]
  - Lip blister [Recovered/Resolved]
  - Papilloma viral infection [Recovered/Resolved]
  - Pruritus [Recovered/Resolved]
  - Tooth abscess [Recovered/Resolved]
  - Dental implantation [Unknown]
  - Tooth infection [Recovered/Resolved]
  - Sensitivity of teeth [Recovered/Resolved]

NARRATIVE: CASE EVENT DATE: 201412
